FAERS Safety Report 12655625 (Version 4)
Quarter: 2016Q3

REPORT INFORMATION
  Report Type: Spontaneous
  Country: BR (occurrence: BR)
  Receive Date: 20160816
  Receipt Date: 20160824
  Transmission Date: 20161109
  Serious: Yes (Death)
  Sender: FDA-Public Use
  Company Number: ALCN2016BR005571

PATIENT
  Age: 2 Month
  Sex: Female

DRUGS (1)
  1. BRIMONIDINE [Suspect]
     Active Substance: BRIMONIDINE TARTRATE
     Dosage: 2 GTT, ONCE/SINGLE
     Route: 048
     Dates: start: 2011

REACTIONS (7)
  - Renal failure [Fatal]
  - Multiple organ dysfunction syndrome [Fatal]
  - Disseminated intravascular coagulation [Fatal]
  - Accidental exposure to product by child [Fatal]
  - Shock [Fatal]
  - Drug dispensing error [Unknown]
  - Pneumonia [Fatal]

NARRATIVE: CASE EVENT DATE: 20110225
